FAERS Safety Report 9979337 (Version 1)
Quarter: 2014Q1

REPORT INFORMATION
  Report Type: Spontaneous
  Country: US (occurrence: US)
  Receive Date: 20140306
  Receipt Date: 20140306
  Transmission Date: 20141002
  Serious: No
  Sender: FDA-Public Use
  Company Number: US-ABBVIE-13P-163-1172178-00

PATIENT
  Age: 66 Year
  Sex: Female
  Weight: 67.65 kg

DRUGS (6)
  1. HUMIRA [Suspect]
     Indication: RHEUMATOID ARTHRITIS
     Dates: start: 201301, end: 201301
  2. HUMIRA [Suspect]
     Dosage: 1 DOSE
     Dates: start: 201303, end: 201303
  3. GABAPENTIN [Concomitant]
     Indication: NERVE COMPRESSION
  4. BENADRYL [Concomitant]
     Indication: ALLERGY TO ANIMAL
  5. AMITRIPTYLINE [Concomitant]
     Indication: INSOMNIA
  6. AZATHIOPRINE [Concomitant]
     Indication: RHEUMATOID ARTHRITIS

REACTIONS (7)
  - Device malfunction [Unknown]
  - Rash [Recovered/Resolved]
  - Infection [Recovered/Resolved]
  - Rash pruritic [Recovered/Resolved]
  - Rash generalised [Recovered/Resolved]
  - Wound [Recovered/Resolved]
  - Wound [Recovered/Resolved]
